FAERS Safety Report 8212428-2 (Version None)
Quarter: 2012Q1

REPORT INFORMATION
  Report Type: 
  Country: None (occurrence: None)
  Receive Date: 20120315
  Receipt Date: 20120309
  Transmission Date: 20120608
  Serious: Yes (Hospitalization, Other)
  Sender: FDA-Public Use
  Company Number: US-BAYER-200942680NA

PATIENT
  Age: 30 Year
  Sex: Female
  Weight: 57 kg

DRUGS (10)
  1. ATIVAN [Concomitant]
  2. PAROXETINE HCL [Concomitant]
  3. WARFARIN SODIUM [Concomitant]
  4. YAZ [Suspect]
     Indication: CONTRACEPTION
     Dosage: UNK
     Route: 048
     Dates: start: 20090201, end: 20090501
  5. NICOTINE [Concomitant]
  6. PRILOSEC [Concomitant]
  7. LORAZEPAM [Concomitant]
  8. SUPRIVA [Concomitant]
  9. ADVAIR DISKUS 100/50 [Concomitant]
  10. DROSPIRENONE AND ETHINYL ESTRADIOL [Suspect]
     Indication: CONTRACEPTION
     Dosage: UNK
     Dates: start: 20090501, end: 20090901

REACTIONS (5)
  - DEEP VEIN THROMBOSIS [None]
  - PLEURITIC PAIN [None]
  - DYSPNOEA [None]
  - AFFECTIVE DISORDER [None]
  - PULMONARY EMBOLISM [None]
